FAERS Safety Report 5455730-X (Version None)
Quarter: 2007Q3

REPORT INFORMATION
  Report Type: 
  Country: None (occurrence: None)
  Receive Date: 20070914
  Receipt Date: 20070831
  Transmission Date: 20080115
  Serious: Yes (Hospitalization)
  Sender: FDA-Public Use
  Company Number: CIP07001696

PATIENT
  Age: 83 Year
  Sex: Female

DRUGS (5)
  1. ACTONEL [Suspect]
     Indication: OSTEOPOROSIS
     Dosage: 35 MG ONCE A WEEK, ORAL
     Route: 048
     Dates: start: 20020101, end: 20070717
  2. LOTREL (BENAZEPRIL HYDROCHLORIDE, AMLODIPINE) [Concomitant]
  3. CALCIUM (CALCIUM) [Concomitant]
  4. VITAMIN D [Concomitant]
  5. MULTIVITAMIN (VITAMIN NOS) [Concomitant]

REACTIONS (2)
  - DIVERTICULITIS [None]
  - SYNOVIAL CYST [None]
